FAERS Safety Report 17128645 (Version 1)
Quarter: 2019Q4

REPORT INFORMATION
  Report Type: Spontaneous
  Country: JP (occurrence: JP)
  Receive Date: 20191209
  Receipt Date: 20191209
  Transmission Date: 20200122
  Serious: Yes (Other)
  Sender: FDA-Public Use
  Company Number: JP-TASMAN PHARMA, INC.-2019TSM00120

PATIENT
  Age: 49 Year
  Sex: Male
  Weight: 57.3 kg

DRUGS (4)
  1. LITHIUM. [Concomitant]
     Active Substance: LITHIUM
     Indication: SCHIZOPHRENIA
     Dosage: 800 MG, 1X/DAY
     Route: 065
  2. CLOZAPINE. [Suspect]
     Active Substance: CLOZAPINE
     Indication: SCHIZOPHRENIA
     Dosage: GRADUALLY INCREASED TO 400 MG, 1X/DAY
     Route: 065
     Dates: start: 20190327, end: 20190625
  3. BLONANSERIN [Concomitant]
     Active Substance: BLONANSERIN
     Indication: SCHIZOPHRENIA
     Dosage: 16 MG, 1X/DAY, THEN TAPERED OFF
     Route: 065
  4. OLANZAPINE. [Concomitant]
     Active Substance: OLANZAPINE
     Indication: SCHIZOPHRENIA
     Dosage: 20 MG, 1X/DAY, THEN TAPERED OFF
     Route: 065

REACTIONS (1)
  - Agranulocytosis [Recovered/Resolved]
